FAERS Safety Report 7176428-6 (Version None)
Quarter: 2010Q4

REPORT INFORMATION
  Report Type: 
  Country: None (occurrence: None)
  Receive Date: 20101207
  Receipt Date: 20101123
  Transmission Date: 20110411
  Serious: Yes (Other)
  Sender: FDA-Public Use
  Company Number: 1000017559

PATIENT
  Age: 26 Year
  Sex: Male

DRUGS (7)
  1. CITALOPRAM HYDROBROMIDE [Suspect]
     Indication: DEPRESSION
     Dosage: 20 MG (20 MG, 1 IN 1 D), ORAL
     Route: 048
  2. CITALOPRAM HYDROBROMIDE [Suspect]
     Indication: DEPRESSION
     Dosage: 40 MG (40 MG, 1 IN 1 D), ORAL
     Route: 048
  3. PROCET (HYDROCODONE, ACETAMINOPHEN) [Suspect]
     Indication: NECK PAIN
     Dosage: 5/500 (3 IN 1 D)
  4. MARIJUANA (CANNABIS SATIVA) (CANNABIS SATIVA) [Concomitant]
  5. TRAZODONE [Concomitant]
  6. VIGRAN (MULTIVITMIN) (MULTIVITAMIN) [Concomitant]
  7. WARFARIN SODIUM [Concomitant]

REACTIONS (3)
  - AKATHISIA [None]
  - SUICIDAL IDEATION [None]
  - TARDIVE DYSKINESIA [None]
